FAERS Safety Report 6216424-6 (Version None)
Quarter: 2009Q2

REPORT INFORMATION
  Report Type: 
  Country: None (occurrence: None)
  Receive Date: 20090605
  Receipt Date: 20090526
  Transmission Date: 20091009
  Serious: Yes (Hospitalization, Other)
  Sender: FDA-Public Use
  Company Number: BR-ABBOTT-09P-020-0576047-00

PATIENT
  Sex: Male

DRUGS (8)
  1. DEPAKOTE [Suspect]
     Indication: EPILEPSY
     Dosage: GRANULES DILUTED IN MILK.
     Route: 048
  2. GARDENAL [Concomitant]
     Indication: EPILEPSY
     Route: 048
  3. HIDANTAL [Concomitant]
     Indication: EPILEPSY
     Route: 048
  4. RIVOTRIL [Concomitant]
     Indication: EPILEPSY
     Route: 048
  5. HALDOL [Concomitant]
     Indication: DRUG USE FOR UNKNOWN INDICATION
     Route: 048
  6. CEFTRIAXONE [Concomitant]
     Indication: DRUG USE FOR UNKNOWN INDICATION
     Route: 030
     Dates: start: 20090525
  7. ALLEGRA [Concomitant]
     Indication: DRUG USE FOR UNKNOWN INDICATION
     Route: 048
  8. NASONEX [Concomitant]
     Indication: STEROID THERAPY

REACTIONS (7)
  - ADENOTONSILLECTOMY [None]
  - AGGRESSION [None]
  - AGITATION [None]
  - CONVULSION [None]
  - PARTIAL SEIZURES [None]
  - POSTOPERATIVE THROMBOSIS [None]
  - PYREXIA [None]
